FAERS Safety Report 19766650 (Version 1)
Quarter: 2021Q3

REPORT INFORMATION
  Report Type: Spontaneous
  Country: US (occurrence: US)
  Receive Date: 20210830
  Receipt Date: 20210830
  Transmission Date: 20211014
  Serious: Yes (Disabling)
  Sender: FDA-Public Use
  Company Number: None

PATIENT
  Age: 23 Year
  Sex: Female
  Weight: 65.25 kg

DRUGS (3)
  1. PROTOPIC [Suspect]
     Active Substance: TACROLIMUS
     Indication: ECZEMA
     Dates: start: 20110120, end: 20201217
  2. DESOXIMETASONE 0.25 [Suspect]
     Active Substance: DESOXIMETASONE
  3. FLUOCINONIDE 0.05% [Suspect]
     Active Substance: FLUOCINONIDE

REACTIONS (12)
  - Lymphadenopathy [None]
  - Body temperature fluctuation [None]
  - Skin haemorrhage [None]
  - Depression [None]
  - Anxiety [None]
  - Steroid withdrawal syndrome [None]
  - Pain of skin [None]
  - Skin weeping [None]
  - Neuralgia [None]
  - Fatigue [None]
  - Chills [None]
  - Feeling cold [None]

NARRATIVE: CASE EVENT DATE: 20201217
